FAERS Safety Report 5254336-5 (Version None)
Quarter: 2007Q1

REPORT INFORMATION
  Report Type: 
  Country: None (occurrence: None)
  Receive Date: 20070302
  Receipt Date: 20070222
  Transmission Date: 20070707
  Serious: Yes (Other)
  Sender: FDA-Public Use
  Company Number: HQWYE154228FEB07

PATIENT

DRUGS (5)
  1. EFFEXOR XR [Suspect]
     Indication: MAJOR DEPRESSION
     Route: 064
     Dates: start: 19980820
  2. EFFEXOR XR [Suspect]
     Indication: OBSESSIVE-COMPULSIVE DISORDER
  3. EFFEXOR XR [Suspect]
     Indication: GENERALISED ANXIETY DISORDER
  4. ZOLOFT [Concomitant]
     Indication: DEPRESSION
     Route: 064
     Dates: start: 19990401
  5. ZOLOFT [Concomitant]
     Indication: OBSESSIVE-COMPULSIVE DISORDER

REACTIONS (2)
  - FOETAL HEART RATE DECREASED [None]
  - NEONATAL ANOXIA [None]
